FAERS Safety Report 21459406 (Version 3)
Quarter: 2022Q4

REPORT INFORMATION
  Report Type: Report from Study
  Country: FR (occurrence: FR)
  Receive Date: 20221014
  Receipt Date: 20221206
  Transmission Date: 20230113
  Serious: Yes (Hospitalization)
  Sender: FDA-Public Use
  Company Number: FR-BRISTOL-MYERS SQUIBB COMPANY-2022-120688

PATIENT
  Age: 60 Year
  Sex: Female
  Weight: 77 kg

DRUGS (5)
  1. NIVOLUMAB [Suspect]
     Active Substance: NIVOLUMAB
     Indication: Squamous cell carcinoma of head and neck
     Dosage: LEAD IN PHASE (D-14_D-10)
     Route: 065
     Dates: start: 20220901
  2. NIVOLUMAB [Suspect]
     Active Substance: NIVOLUMAB
     Dosage: CYCLE 1 (D 1)
     Route: 065
     Dates: start: 20220915
  3. NIVOLUMAB [Suspect]
     Active Substance: NIVOLUMAB
     Dosage: CYCLE 2 (D 22)
     Route: 065
     Dates: start: 20221007
  4. CISPLATIN [Suspect]
     Active Substance: CISPLATIN
     Indication: Squamous cell carcinoma of head and neck
     Dosage: CYCLE 1 ON DAY 1 (180 MG)
     Route: 065
     Dates: start: 20220915
  5. CISPLATIN [Suspect]
     Active Substance: CISPLATIN
     Dosage: CYCLE 2 ON DAY 22 (180 MG)
     Route: 065
     Dates: start: 20221007

REACTIONS (1)
  - Hypersensitivity [Recovered/Resolved]

NARRATIVE: CASE EVENT DATE: 20221008
